FAERS Safety Report 12904697 (Version 1)
Quarter: 2016Q4

REPORT INFORMATION
  Report Type: Spontaneous
  Country: US (occurrence: US)
  Receive Date: 20161102
  Receipt Date: 20161102
  Transmission Date: 20170207
  Serious: Yes (Hospitalization)
  Sender: FDA-Public Use
  Company Number: US-ASTRAZENECA-2016SF13803

PATIENT
  Age: 1 Year
  Sex: Male
  Weight: 11.3 kg

DRUGS (1)
  1. SYNAGIS [Suspect]
     Active Substance: PALIVIZUMAB
     Indication: CARDIAC DISORDER
     Route: 030
     Dates: start: 201510, end: 201603

REACTIONS (6)
  - Respiratory syncytial virus test positive [Unknown]
  - Wheezing [Unknown]
  - Drug dose omission [Unknown]
  - Cough [Unknown]
  - Malaise [Unknown]
  - Infection [Unknown]

NARRATIVE: CASE EVENT DATE: 201603
